FAERS Safety Report 8478839-5 (Version None)
Quarter: 2012Q2

REPORT INFORMATION
  Report Type: 
  Country: None (occurrence: None)
  Receive Date: 20120629
  Receipt Date: 20120625
  Transmission Date: 20120825
  Serious: Yes (Death, Other)
  Sender: FDA-Public Use
  Company Number: US-CELGENEUS-163-21880-12063542

PATIENT
  Sex: Female

DRUGS (1)
  1. REVLIMID [Suspect]
     Dosage: 5 MILLIGRAM
     Route: 048
     Dates: start: 20110801

REACTIONS (6)
  - MYELODYSPLASTIC SYNDROME [None]
  - FALL [None]
  - PELVIC FRACTURE [None]
  - INFECTION [None]
  - FATIGUE [None]
  - CARDIAC FUNCTION TEST ABNORMAL [None]
